FAERS Safety Report 10962883 (Version 1)
Quarter: 2015Q1

REPORT INFORMATION
  Report Type: Spontaneous
  Country: US (occurrence: US)
  Receive Date: 20150327
  Receipt Date: 20150327
  Transmission Date: 20150721
  Serious: No
  Sender: FDA-Public Use
  Company Number: US-PFIZER INC-2015109065

PATIENT
  Age: 50 Year
  Sex: Female
  Weight: 79.37 kg

DRUGS (2)
  1. CHANTIX [Suspect]
     Active Substance: VARENICLINE TARTRATE
     Dosage: 0.5 MG, UNK
  2. CHANTIX [Suspect]
     Active Substance: VARENICLINE TARTRATE
     Dosage: 1 MG, UNK

REACTIONS (4)
  - Abdominal discomfort [Unknown]
  - Malaise [Unknown]
  - Nausea [Unknown]
  - Constipation [Unknown]
